FAERS Safety Report 6067348-9 (Version None)
Quarter: 2009Q1

REPORT INFORMATION
  Report Type: 
  Country: None (occurrence: None)
  Receive Date: 20090204
  Receipt Date: 20090204
  Transmission Date: 20090719
  Serious: Yes (Other)
  Sender: FDA-Public Use
  Company Number: None

PATIENT
  Age: 16 Year
  Sex: Female
  Weight: 52.6173 kg

DRUGS (2)
  1. ZEMURON [Suspect]
     Indication: REPETITIVE STRAIN INJURY
     Dosage: 60MG IV BOLUS 30MG 20MINUTES LATER IV BOLUS
     Route: 040
     Dates: start: 20090120, end: 20090120
  2. ZEMURON [Suspect]

REACTIONS (2)
  - DRUG INEFFECTIVE [None]
  - RESPIRATORY RATE INCREASED [None]
